FAERS Safety Report 21185133 (Version 3)
Quarter: 2022Q4

REPORT INFORMATION
  Report Type: Spontaneous
  Country: JP (occurrence: JP)
  Receive Date: 20220808
  Receipt Date: 20221123
  Transmission Date: 20230113
  Serious: Yes (Hospitalization, Other)
  Sender: FDA-Public Use
  Company Number: JP-GLAXOSMITHKLINE-JP2022JPN113924

PATIENT
  Age: 22 Year
  Sex: Male

DRUGS (4)
  1. AMBRISENTAN [Suspect]
     Active Substance: AMBRISENTAN
     Indication: Pulmonary hypertension
     Dosage: 2.5 MG, QD
     Route: 048
  2. ENALAPRIL MALEATE [Concomitant]
     Active Substance: ENALAPRIL MALEATE
     Indication: Vascular resistance systemic
     Dosage: 2.5 MG, QD
     Route: 048
  3. BUFFERIN A [ACETYLSALICYLIC ACID;ALUMINIUM GLYCINATE;MAGNESIUM CARBONA [Concomitant]
     Indication: Antiplatelet therapy
     Dosage: 1 DOSAGE FORM, QD
     Route: 048
  4. WARFARIN POTASSIUM [Concomitant]
     Active Substance: WARFARIN POTASSIUM
     Indication: Anticoagulant therapy
     Dosage: QD
     Route: 048

REACTIONS (10)
  - Meningitis listeria [Unknown]
  - Altered state of consciousness [Unknown]
  - Electrocardiogram ST segment elevation [Unknown]
  - Pyrexia [Unknown]
  - Nausea [Unknown]
  - Chest pain [Unknown]
  - Myocardial infarction [Recovered/Resolved]
  - Dysphagia [Unknown]
  - Prescribed underdose [Unknown]
  - Off label use [Unknown]

NARRATIVE: CASE EVENT DATE: 20211219
